FAERS Safety Report 10389299 (Version 1)
Quarter: 2014Q3

REPORT INFORMATION
  Report Type: Report from Study
  Country: IN (occurrence: IN)
  Receive Date: 20140818
  Receipt Date: 20140818
  Transmission Date: 20150326
  Serious: Yes (Other)
  Sender: FDA-Public Use
  Company Number: IN-ROCHE-1447074

PATIENT

DRUGS (4)
  1. INTERFERON ALFA-2A [Suspect]
     Active Substance: INTERFERON ALFA-2A
     Indication: LIVER DISORDER
  2. RIBAVIRIN. [Suspect]
     Active Substance: RIBAVIRIN
     Indication: LIVER DISORDER
  3. INTERFERON ALFA-2A [Suspect]
     Active Substance: INTERFERON ALFA-2A
     Indication: HEPATITIS C
     Dosage: MEDIAN DOSE 1.5 MIU/DAY (RANGE 0.75-3.0 MIU/DAY) FOR MEDIAN DURATION OF 12 MONTHS (RANGE 1-36 MONTHS
     Route: 065
  4. RIBAVIRIN. [Suspect]
     Active Substance: RIBAVIRIN
     Indication: HEPATITIS C
     Dosage: MEDIAN DOSE 400 MG/DAY (RANGE 200-600 MG/DAY) FOR MEDIAN DURATION 7.5 MONTHS (RANGE 0.8-20 MTHS)
     Route: 065

REACTIONS (10)
  - Hepatic encephalopathy [Unknown]
  - Anaemia [Unknown]
  - Skin infection [Unknown]
  - Leukopenia [Unknown]
  - Diarrhoea infectious [Unknown]
  - Hepatic failure [Unknown]
  - Pulmonary tuberculosis [Unknown]
  - Haemolytic anaemia [Unknown]
  - Thrombocytopenia [Unknown]
  - Peritonitis bacterial [Unknown]
